FAERS Safety Report 11143698 (Version 2)
Quarter: 2015Q2

REPORT INFORMATION
  Report Type: Spontaneous
  Country: TR (occurrence: TR)
  Receive Date: 20150526
  Receipt Date: 20150612
  Transmission Date: 20150821
  Serious: Yes (Hospitalization, Other)
  Sender: FDA-Public Use
  Company Number: TR-ROCHE-1583391

PATIENT
  Age: 24 Year
  Sex: Female

DRUGS (2)
  1. FEXOFENADINE [Concomitant]
     Active Substance: FEXOFENADINE\FEXOFENADINE HYDROCHLORIDE
     Route: 065
     Dates: start: 2014
  2. XOLAIR [Suspect]
     Active Substance: OMALIZUMAB
     Indication: CHRONIC SPONTANEOUS URTICARIA
     Route: 058
     Dates: start: 20150515, end: 20150515

REACTIONS (11)
  - Sneezing [Unknown]
  - Choking [Unknown]
  - Cough [Unknown]
  - Pruritus [Unknown]
  - Urticaria [Recovered/Resolved]
  - Upper airway obstruction [Unknown]
  - Sensation of foreign body [Unknown]
  - Rash [Unknown]
  - Bronchial obstruction [Recovered/Resolved]
  - Hyperventilation [Unknown]
  - Anaphylactic reaction [Unknown]

NARRATIVE: CASE EVENT DATE: 20150515
